FAERS Safety Report 8607157 (Version 2)
Quarter: 2013Q1

REPORT INFORMATION
  Report Type: Spontaneous
  Country: US (occurrence: US)
  Receive Date: 20120611
  Receipt Date: 20130114
  Transmission Date: 20140127
  Serious: No
  Sender: FDA-Public Use
  Company Number: US-ASTRAZENECA-2012SE35582

PATIENT
  Age: 82 Year
  Sex: Female

DRUGS (4)
  1. NEXIUM [Suspect]
     Indication: GASTROOESOPHAGEAL REFLUX DISEASE
     Route: 048
     Dates: end: 201103
  2. NEXIUM [Suspect]
     Indication: GASTROOESOPHAGEAL REFLUX DISEASE
     Route: 048
     Dates: start: 20111026
  3. LORATADINE [Concomitant]
     Dates: start: 20111231
  4. MELOXICAM [Concomitant]
     Dates: start: 20120123

REACTIONS (3)
  - Osteoporosis [Unknown]
  - Ankle fracture [Unknown]
  - Bone disorder [Unknown]
